FAERS Safety Report 23854205 (Version 1)
Quarter: 2024Q2

REPORT INFORMATION
  Report Type: Spontaneous
  Country: NO (occurrence: NO)
  Receive Date: 20240514
  Receipt Date: 20240514
  Transmission Date: 20240716
  Serious: Yes (Hospitalization)
  Sender: FDA-Public Use
  Company Number: None

PATIENT
  Age: 77 Year
  Sex: Male

DRUGS (8)
  1. HYRIMOZ [Suspect]
     Active Substance: ADALIMUMAB-ADAZ
     Indication: Rheumatoid arthritis
     Dosage: 40 MG, BIW (INSUFFICIENT EFFECT OF METHOREXATE ALONE)
     Route: 058
     Dates: start: 20190320, end: 20210806
  2. ATORVASTATIN XIROMED [Concomitant]
     Indication: Myocardial infarction
     Dosage: 40 MG, QD
     Route: 065
  3. ELIQUIS [Concomitant]
     Active Substance: APIXABAN
     Indication: Arrhythmia
     Dosage: 5 MG, Q12H (PREVIOUSLY ACETYLSALISYLIC ACID (ALBYL-E))
     Route: 048
     Dates: start: 20210818
  4. ENALAPRIL [Concomitant]
     Active Substance: ENALAPRIL
     Indication: Hypertension
     Dosage: 2.5 MG, QD
     Route: 048
  5. Folsyre orifarm [Concomitant]
     Indication: Rheumatoid arthritis
     Dosage: 1 MG, QD
     Route: 065
     Dates: start: 20160125
  6. METHOTREXATE [Concomitant]
     Active Substance: METHOTREXATE
     Indication: Rheumatoid arthritis
     Dosage: 10 MG, QW (10 MILLIGRAMS PER WEEK)
     Route: 048
     Dates: start: 20160125
  7. METOPROLOL [Concomitant]
     Active Substance: METOPROLOL
     Indication: Arrhythmia
     Dosage: 100 MG, QD (DOSE INCREASED AFTER THE EVENT)
     Route: 048
  8. SINEMET [Concomitant]
     Active Substance: CARBIDOPA\LEVODOPA
     Indication: Parkinson^s disease
     Dosage: 25 MG, Q6H
     Route: 048

REACTIONS (5)
  - Troponin increased [Recovered/Resolved]
  - Syncope [Recovered/Resolved]
  - Atrial fibrillation [Recovered/Resolved]
  - Acute myocardial infarction [Recovered/Resolved]
  - Tachycardia [Recovered/Resolved]

NARRATIVE: CASE EVENT DATE: 20210802
